FAERS Safety Report 16561637 (Version 2)
Quarter: 2019Q3

REPORT INFORMATION
  Report Type: Spontaneous
  Country: US (occurrence: US)
  Receive Date: 20190711
  Receipt Date: 20190726
  Transmission Date: 20191004
  Serious: Yes (Hospitalization)
  Sender: FDA-Public Use
  Company Number: US-FARMAPROD-201906-0941

PATIENT
  Age: 72 Year
  Sex: Female

DRUGS (21)
  1. REFRESH PLUS [Concomitant]
     Active Substance: CARBOXYMETHYLCELLULOSE SODIUM
  2. VIGAMOX [Concomitant]
     Active Substance: MOXIFLOXACIN HYDROCHLORIDE
     Route: 047
     Dates: start: 20190505
  3. SYSTANE (HYPROMELLOSE 2910 (4000 MPA.S)) [Concomitant]
     Active Substance: HYPROMELLOSE 2910 (4000 MPA.S)
     Route: 047
  4. VITAMIN C [Concomitant]
     Active Substance: ASCORBIC ACID
     Route: 048
  5. ROMYCIN [Concomitant]
     Dosage: 0.5 INCHES 4 TIMES A DAY
     Route: 047
     Dates: start: 20190408, end: 20190628
  6. OMEGA [Concomitant]
     Active Substance: CONVALLARIA MAJALIS\CRATAEGUS LAEVIGATA LEAF\PROXYPHYLLINE
     Route: 048
     Dates: end: 20190628
  7. FML FORTE [Concomitant]
     Active Substance: FLUOROMETHOLONE
     Route: 047
     Dates: start: 20190521
  8. ASTELIN [Concomitant]
     Active Substance: AZELASTINE HYDROCHLORIDE
     Route: 045
     Dates: start: 20170617, end: 20190628
  9. CALCIUM CARBONATE. [Concomitant]
     Active Substance: CALCIUM CARBONATE
     Route: 048
     Dates: start: 20150615, end: 20190628
  10. COLACE [Concomitant]
     Active Substance: DOCUSATE SODIUM
     Route: 048
     Dates: start: 20190504, end: 20190603
  11. PLAQUENIL [Concomitant]
     Active Substance: HYDROXYCHLOROQUINE SULFATE
     Dosage: 1 TABLET EVERY OTHER DAY
     Route: 048
     Dates: start: 20181220
  12. TYLENOL [Concomitant]
     Active Substance: ACETAMINOPHEN
     Route: 048
     Dates: start: 20190504, end: 20190628
  13. LUBRIFRESH [Concomitant]
     Route: 047
     Dates: start: 20190504
  14. OXERVATE [Suspect]
     Active Substance: CENEGERMIN-BKBJ
     Indication: NEUROTROPHIC KERATOPATHY
     Route: 047
     Dates: start: 20190613
  15. ZITHROMAX [Concomitant]
     Active Substance: AZITHROMYCIN DIHYDRATE
     Indication: PRODUCT USED FOR UNKNOWN INDICATION
     Dosage: 1 TABLET EVERY 3 DAYS
     Route: 048
     Dates: start: 20181205
  16. VITAMIN D3 [Concomitant]
     Active Substance: CHOLECALCIFEROL
     Dosage: 5000 UNITS/DAY
     Route: 048
     Dates: start: 20131108, end: 20190628
  17. PREVIDENT [Concomitant]
     Active Substance: SODIUM FLUORIDE
     Route: 047
     Dates: start: 20160906
  18. POLYTRIM [Concomitant]
     Active Substance: POLYMYXIN B SULFATE\TRIMETHOPRIM SULFATE
     Route: 047
     Dates: start: 20190507
  19. GLUCOSAMINE [Concomitant]
     Active Substance: GLUCOSAMINE
     Route: 048
     Dates: end: 20190628
  20. OXYCODONE [Concomitant]
     Active Substance: OXYCODONE
     Indication: PAIN
     Dosage: 0.5/1 TABLETS EVERY 4 HOUR AS NEEDED
     Route: 048
     Dates: start: 20190504, end: 20190701
  21. SENOKOT [Concomitant]
     Active Substance: SENNOSIDES
     Dosage: 2 TABLETS 2 TIMES A DAY
     Route: 048
     Dates: start: 20190504, end: 20190603

REACTIONS (4)
  - Fatigue [Recovered/Resolved]
  - Chest pain [Unknown]
  - Blister [Recovered/Resolved]
  - Headache [Recovered/Resolved]

NARRATIVE: CASE EVENT DATE: 20190614
